FAERS Safety Report 13142877 (Version 1)
Quarter: 2017Q1

REPORT INFORMATION
  Report Type: Spontaneous
  Country: US (occurrence: US)
  Receive Date: 20170124
  Receipt Date: 20170124
  Transmission Date: 20170428
  Serious: Yes (Other)
  Sender: FDA-Public Use
  Company Number: US-RECKITT BENCKISER HEALTHCARE INT LIMITED-RB-81011-2017

PATIENT
  Age: 65 Year
  Sex: Female

DRUGS (1)
  1. MUCINEX SINUS-MAX SEVERE CONGESTION RELIEF CLEAR AND COOL [Suspect]
     Active Substance: ACETAMINOPHEN\GUAIFENESIN\PHENYLEPHRINE HYDROCHLORIDE
     Indication: PRODUCT USED FOR UNKNOWN INDICATION
     Dosage: UNK, SINGLE
     Route: 048
     Dates: start: 20170105, end: 20170105

REACTIONS (4)
  - Accidental exposure to product packaging [None]
  - Discomfort [None]
  - Product contamination physical [Recovered/Resolved]
  - Foreign body [Recovered/Resolved]

NARRATIVE: CASE EVENT DATE: 20170105
